FAERS Safety Report 9837831 (Version 1)
Quarter: 2014Q1

REPORT INFORMATION
  Report Type: Spontaneous
  Country: US (occurrence: None)
  Receive Date: 20140117
  Receipt Date: 20140117
  Transmission Date: 20141002
  Serious: Yes (Other)
  Sender: FDA-Public Use
  Company Number: None

PATIENT
  Age: 71 Year
  Sex: Male

DRUGS (7)
  1. ADENOSINE [Suspect]
     Route: 042
     Dates: start: 20140115, end: 20140115
  2. LIDOCAINE 1% [Concomitant]
  3. AMIODARONE [Concomitant]
  4. ANCEF [Concomitant]
  5. HEPARIN [Concomitant]
  6. FUROSEMIDE [Concomitant]
  7. PROTAMINE [Concomitant]

REACTIONS (1)
  - No adverse event [None]
